FAERS Safety Report 11221134 (Version 2)
Quarter: 2015Q3

REPORT INFORMATION
  Report Type: Report from Study
  Country: CO (occurrence: CO)
  Receive Date: 20150626
  Receipt Date: 20150709
  Transmission Date: 20151125
  Serious: Yes (Hospitalization, Other)
  Sender: FDA-Public Use
  Company Number: CO-BAYER-2015-296541

PATIENT
  Age: 74 Year
  Sex: Female

DRUGS (8)
  1. FUROSEMIDE. [Concomitant]
     Active Substance: FUROSEMIDE
  2. VENTAVIS [Interacting]
     Active Substance: ILOPROST
     Indication: PULMONARY HYPERTENSION
     Dosage: 1 DF, 8ID
     Route: 055
  3. RIOCIGUAT (GUANYLATE CYCLASE STIMULATOR) [Suspect]
     Active Substance: RIOCIGUAT
     Dosage: UNK
  4. SPIRONOLACTONE. [Concomitant]
     Active Substance: SPIRONOLACTONE
  5. ENALAPRIL [Concomitant]
     Active Substance: ENALAPRIL
  6. LANITOP [Concomitant]
     Active Substance: METILDIGOXIN
     Dosage: UNK
  7. VENTAVIS [Interacting]
     Active Substance: ILOPROST
     Indication: PULMONARY HYPERTENSION
     Dosage: 1 DF, TID
     Route: 055
  8. WARFARIN [Interacting]
     Active Substance: WARFARIN

REACTIONS (5)
  - Joint injury [None]
  - Labelled drug-drug interaction medication error [None]
  - Product use issue [Not Recovered/Not Resolved]
  - Cardiac failure [Recovered/Resolved]
  - Haemarthrosis [Not Recovered/Not Resolved]

NARRATIVE: CASE EVENT DATE: 20150511
